FAERS Safety Report 8018814-8 (Version None)
Quarter: 2012Q1

REPORT INFORMATION
  Report Type: 
  Country: None (occurrence: None)
  Receive Date: 20120103
  Receipt Date: 20111219
  Transmission Date: 20120608
  Serious: Yes (Death)
  Sender: FDA-Public Use
  Company Number: US-PFIZER INC-2011313939

PATIENT
  Age: 33 Year
  Sex: Male

DRUGS (4)
  1. MORPHINE SULFATE [Suspect]
  2. TRAZODONE HCL [Suspect]
  3. CITALOPRAM [Suspect]
  4. DIPHENHYDRAMINE HCL [Suspect]

REACTIONS (3)
  - DRUG ABUSE [None]
  - CARDIAC ARREST [None]
  - RESPIRATORY ARREST [None]
